FAERS Safety Report 13273284 (Version 5)
Quarter: 2017Q2

REPORT INFORMATION
  Report Type: Report from Study
  Country: US (occurrence: US)
  Receive Date: 20170227
  Receipt Date: 20170519
  Transmission Date: 20170830
  Serious: Yes (Life-Threatening, Hospitalization)
  Sender: FDA-Public Use
  Company Number: US-GILEAD-2017-0259464

PATIENT
  Age: 78 Year
  Sex: Female
  Weight: 90.7 kg

DRUGS (9)
  1. AMBRISENTAN [Suspect]
     Active Substance: AMBRISENTAN
     Indication: PULMONARY HYPERTENSION
     Dosage: 10 MG, QD
     Route: 065
     Dates: start: 20120911
  2. PRADAXA [Concomitant]
     Active Substance: DABIGATRAN ETEXILATE MESYLATE
  3. JANUVIA [Concomitant]
     Active Substance: SITAGLIPTIN PHOSPHATE
  4. SILDENAFIL. [Concomitant]
     Active Substance: SILDENAFIL
  5. LASIX [Concomitant]
     Active Substance: FUROSEMIDE
  6. AMBRISENTAN [Suspect]
     Active Substance: AMBRISENTAN
     Indication: SLEEP APNOEA SYNDROME
  7. SYNTHROID [Concomitant]
     Active Substance: LEVOTHYROXINE SODIUM
  8. REVATIO [Concomitant]
     Active Substance: SILDENAFIL CITRATE
  9. LEVIXIRAN [Concomitant]

REACTIONS (2)
  - Dyspnoea [Recovered/Resolved]
  - Dyspnoea [Unknown]

NARRATIVE: CASE EVENT DATE: 20170213
